FAERS Safety Report 5179095-6 (Version None)
Quarter: 2006Q4

REPORT INFORMATION
  Report Type: 
  Country: None (occurrence: None)
  Receive Date: 20061219
  Receipt Date: 20061213
  Transmission Date: 20070319
  Serious: Yes (Death, Hospitalization)
  Sender: FDA-Public Use
  Company Number: PHBS2006JP19365

PATIENT
  Age: 23 Year
  Sex: Female

DRUGS (7)
  1. CYCLOSPORINE [Suspect]
     Indication: APLASTIC ANAEMIA
     Dosage: UNK, UNK
     Dates: start: 20011101, end: 20020701
  2. CYCLOSPORINE [Suspect]
     Dosage: 250 MG/D
     Route: 065
     Dates: start: 20000401
  3. IRRADIATION [Concomitant]
     Dates: start: 20011112
  4. METHOTREXATE [Concomitant]
     Indication: BONE MARROW TRANSPLANT
  5. ANTITHYMOCYTE IMMUNOGLOBULIN [Concomitant]
     Indication: APLASTIC ANAEMIA
     Dosage: 500 MG/D
  6. CYCLOPHOSPHAMIDE [Concomitant]
     Indication: APLASTIC ANAEMIA
     Dosage: 50 MG/KG/D
  7. CYCLOPHOSPHAMIDE [Concomitant]
     Dosage: 250 MG/D

REACTIONS (18)
  - ABDOMINAL INFECTION [None]
  - APLASTIC ANAEMIA [None]
  - BONE MARROW DISORDER [None]
  - BONE MARROW FAILURE [None]
  - CHROMOSOME ABNORMALITY [None]
  - COMA HEPATIC [None]
  - DISEASE PROGRESSION [None]
  - HAEMOSIDEROSIS [None]
  - HEPATIC ATROPHY [None]
  - HEPATIC FAILURE [None]
  - HEPATIC FUNCTION ABNORMAL [None]
  - HEPATITIS [None]
  - INTRA-ABDOMINAL HAEMORRHAGE [None]
  - LIVER TRANSPLANT [None]
  - MYELODYSPLASTIC SYNDROME [None]
  - PANCYTOPENIA [None]
  - STEM CELL TRANSPLANT [None]
  - THROMBOCYTOPENIA [None]
